FAERS Safety Report 11573119 (Version 2)
Quarter: 2015Q4

REPORT INFORMATION
  Report Type: Spontaneous
  Country: US (occurrence: US)
  Receive Date: 20150916
  Receipt Date: 20151027
  Transmission Date: 20160304
  Serious: No
  Sender: FDA-Public Use
  Company Number: US-ELI_LILLY_AND_COMPANY-US200910006757

PATIENT
  Sex: Female

DRUGS (2)
  1. FORTEO [Suspect]
     Active Substance: TERIPARATIDE
     Dosage: 20 UG, DAILY (1/D)
     Route: 058
  2. FORTEO [Suspect]
     Active Substance: TERIPARATIDE
     Indication: OSTEOPOROSIS
     Dosage: 20 UG, DAILY (1/D)
     Route: 058
     Dates: start: 20090416

REACTIONS (9)
  - Pyrexia [Not Recovered/Not Resolved]
  - Feeling hot [Unknown]
  - Pain in jaw [Unknown]
  - Hypoaesthesia [Unknown]
  - Fall [Unknown]
  - Chills [Not Recovered/Not Resolved]
  - Headache [Unknown]
  - Cast application [Unknown]
  - Pain in extremity [Unknown]
